FAERS Safety Report 24774474 (Version 1)
Quarter: 2024Q4

REPORT INFORMATION
  Report Type: Report from Study
  Country: CA (occurrence: CA)
  Receive Date: 20241225
  Receipt Date: 20241225
  Transmission Date: 20250114
  Serious: Yes (Other)
  Sender: JOHNSON AND JOHNSON
  Company Number: CA-JNJFOC-20241246707

PATIENT
  Sex: Male

DRUGS (1)
  1. SIMPONI [Interacting]
     Active Substance: GOLIMUMAB
     Indication: Ankylosing spondylitis
     Route: 058
     Dates: start: 20180102, end: 20241014

REACTIONS (3)
  - Plasma cell myeloma [Unknown]
  - Drug interaction [Unknown]
  - Off label use [Unknown]
